FAERS Safety Report 5893036-5 (Version None)
Quarter: 2008Q3

REPORT INFORMATION
  Report Type: 
  Country: None (occurrence: None)
  Receive Date: 20080923
  Receipt Date: 20080320
  Transmission Date: 20090109
  Serious: No
  Sender: FDA-Public Use
  Company Number: US-ASTRAZENECA-2006UW27923

PATIENT
  Age: 48 Year
  Sex: Male
  Weight: 118.2 kg

DRUGS (3)
  1. SEROQUEL [Suspect]
     Indication: ANXIETY
     Dosage: 1 TO 3 TIMES DAILY
     Route: 048
     Dates: start: 20000601, end: 20050101
  2. SEROQUEL [Suspect]
     Indication: DEPRESSION
     Dosage: 1 TO 3 TIMES DAILY
     Route: 048
     Dates: start: 20000601, end: 20050101
  3. GEODON [Concomitant]

REACTIONS (2)
  - DIABETES MELLITUS [None]
  - OBESITY [None]
